FAERS Safety Report 7765574 (Version 3)
Quarter: 2013Q2

REPORT INFORMATION
  Report Type: Spontaneous
  Country: JP (occurrence: JP)
  Receive Date: 20110119
  Receipt Date: 20130507
  Transmission Date: 20140414
  Serious: Yes (Hospitalization)
  Sender: FDA-Public Use
  Company Number: JP-ALEXION-A201100059

PATIENT
  Age: 49 Year
  Sex: Female

DRUGS (11)
  1. SOLIRIS 300MG [Suspect]
     Indication: PAROXYSMAL NOCTURNAL HAEMOGLOBINURIA
     Dosage: 600 MG, UNK
     Route: 042
     Dates: start: 20100720
  2. SOLIRIS 300MG [Suspect]
     Dosage: 900 MG, Q2W
     Route: 042
  3. INCREMIN [Concomitant]
     Dosage: UNK
     Dates: start: 20100727, end: 20100927
  4. EXCELASE [Concomitant]
     Dosage: UNK
     Dates: start: 20101012
  5. PROBIOTICA [Concomitant]
     Dosage: UNK
     Dates: start: 20100927, end: 20101011
  6. VITAMEDIN [Concomitant]
     Dosage: UNK
     Dates: start: 20101026
  7. MEILAX [Concomitant]
  8. CONSTAN [Concomitant]
  9. LENDORMIN [Concomitant]
  10. SELBEX [Concomitant]
  11. GUAIFENESIN W/PHENYLEPHRINE [Concomitant]

REACTIONS (6)
  - Condition aggravated [Recovering/Resolving]
  - Depression [Recovering/Resolving]
  - Muscle spasms [Recovering/Resolving]
  - Insomnia [Recovered/Resolved]
  - Dizziness [Recovering/Resolving]
  - Arthralgia [Recovering/Resolving]
